FAERS Safety Report 20512873 (Version 15)
Quarter: 2023Q2

REPORT INFORMATION
  Report Type: Spontaneous
  Country: CA (occurrence: CA)
  Receive Date: 20220224
  Receipt Date: 20230626
  Transmission Date: 20230722
  Serious: Yes (Hospitalization, Other)
  Sender: FDA-Public Use
  Company Number: CA-PFIZER INC-202200267582

PATIENT
  Age: 4 Week
  Sex: Female
  Weight: 37.9 kg

DRUGS (12)
  1. SOMATROPIN [Suspect]
     Active Substance: SOMATROPIN
     Indication: Growth hormone deficiency
     Dosage: 5.3 MG 6 DAYS PER WEEK
     Dates: end: 202202
  2. SOMATROPIN [Suspect]
     Active Substance: SOMATROPIN
     Indication: Prader-Willi syndrome
     Dosage: 700 UG, 6X/WEEK
     Route: 042
     Dates: start: 20180801, end: 20220215
  3. SOMATROPIN [Suspect]
     Active Substance: SOMATROPIN
     Dosage: 700 UG AT EVERY 6 WEEK
     Route: 042
     Dates: start: 20220215
  4. SOMATROPIN [Suspect]
     Active Substance: SOMATROPIN
     Dosage: 0.5 MG, 6X/WEEK DISCONTINUED (500 UG)
     Route: 058
     Dates: start: 202209
  5. SOMATROPIN [Suspect]
     Active Substance: SOMATROPIN
     Dosage: 1.0 MG, 6X/WEEK
     Route: 058
     Dates: start: 202209
  6. SOMATROPIN [Suspect]
     Active Substance: SOMATROPIN
     Dosage: 1 MG  6X/WEEK
     Route: 058
  7. SOMATROPIN [Suspect]
     Active Substance: SOMATROPIN
     Dosage: UNK
     Route: 058
  8. SOMATROPIN [Suspect]
     Active Substance: SOMATROPIN
     Dosage: 30 UG, 6 TIMES A WEEK (NOT YET STARTED)
     Route: 058
  9. SOMATROPIN [Suspect]
     Active Substance: SOMATROPIN
     Dosage: 0.03 MG/KG, 6 DAYS/WEEK FOR 26 WEEKS (0.1895 MG PER INJECTION)
     Route: 058
  10. LEVOTHYROXINE [Concomitant]
     Active Substance: LEVOTHYROXINE
     Indication: Hypothyroidism
     Dosage: 37.5 UG, DAILY
     Route: 048
     Dates: start: 202002
  11. NORDITROPIN [Concomitant]
     Active Substance: SOMATROPIN
     Dosage: UNK, PREVIOUSLY ON NORDITROPIN STARTED IN INDIA
  12. CHOLECALCIFEROL [Concomitant]
     Active Substance: CHOLECALCIFEROL
     Dosage: 1000 IU, DAILY
     Route: 048

REACTIONS (12)
  - Obstructive sleep apnoea syndrome [Recovered/Resolved]
  - COVID-19 [Unknown]
  - Dehydration [Unknown]
  - Pyrexia [Unknown]
  - Infantile diarrhoea [Unknown]
  - Cough [Unknown]
  - Tonsillar disorder [Not Recovered/Not Resolved]
  - Oxygen saturation decreased [Unknown]
  - Adenoidal disorder [Unknown]
  - Off label use [Unknown]
  - Off label use [Unknown]
  - Device leakage [Unknown]

NARRATIVE: CASE EVENT DATE: 20180801
